FAERS Safety Report 8198513-2 (Version None)
Quarter: 2012Q1

REPORT INFORMATION
  Report Type: 
  Country: None (occurrence: None)
  Receive Date: 20120309
  Receipt Date: 20120307
  Transmission Date: 20120608
  Serious: Yes (Death, Hospitalization, Disabling)
  Sender: FDA-Public Use
  Company Number: PHHY2011GB100551

PATIENT
  Age: 82 Year
  Sex: Female
  Weight: 70 kg

DRUGS (7)
  1. ADIZEM-XL [Concomitant]
  2. RAMIPRIL [Concomitant]
  3. GALANTAMINE HYDROBROMIDE [Concomitant]
  4. WARFARIN SODIUM [Suspect]
     Dosage: UNK
     Route: 048
     Dates: end: 20111105
  5. ATORVASTATIN [Concomitant]
  6. BIMATOPROST [Concomitant]
  7. FUROSEMIDE [Concomitant]

REACTIONS (4)
  - CEREBRAL HAEMORRHAGE [None]
  - HYPERTENSION [None]
  - UNRESPONSIVE TO STIMULI [None]
  - HEMIPARESIS [None]
